FAERS Safety Report 6903734-X (Version None)
Quarter: 2010Q3

REPORT INFORMATION
  Report Type: 
  Country: None (occurrence: None)
  Receive Date: 20100804
  Receipt Date: 20081121
  Transmission Date: 20110219
  Serious: No
  Sender: FDA-Public Use
  Company Number: US-PFIZER INC-2008099275

PATIENT
  Age: 63 Year
  Sex: Female

DRUGS (7)
  1. LYRICA [Suspect]
     Indication: FIBROMYALGIA
  2. LEVOTHYROXINE [Concomitant]
  3. NORVASC [Concomitant]
  4. IPRATROPIUM BROMIDE [Concomitant]
     Route: 055
  5. ALBUTEROL [Concomitant]
     Route: 055
  6. ACETAMINOPHEN [Concomitant]
  7. PERCOCET [Concomitant]

REACTIONS (2)
  - OEDEMA PERIPHERAL [None]
  - PAIN [None]
